FAERS Safety Report 16348692 (Version 1)
Quarter: 2019Q2

REPORT INFORMATION
  Report Type: Spontaneous
  Country: US (occurrence: US)
  Receive Date: 20190523
  Receipt Date: 20190523
  Transmission Date: 20190711
  Serious: No
  Sender: FDA-Public Use
  Company Number: US-TEVA-2019-US-1051746

PATIENT
  Sex: Female

DRUGS (2)
  1. ALPRAZOLAM TEVA [Suspect]
     Active Substance: ALPRAZOLAM
  2. ALPRAZOLAM TEVA [Suspect]
     Active Substance: ALPRAZOLAM

REACTIONS (3)
  - Panic attack [Unknown]
  - Product physical issue [Unknown]
  - Accident [Unknown]
